FAERS Safety Report 5816643-4 (Version None)
Quarter: 2008Q3

REPORT INFORMATION
  Report Type: 
  Country: None (occurrence: None)
  Receive Date: 20080721
  Receipt Date: 20080710
  Transmission Date: 20090109
  Serious: Yes (Other)
  Sender: FDA-Public Use
  Company Number: US-PFIZER INC-2008018107

PATIENT
  Age: 65 Year
  Sex: Female

DRUGS (9)
  1. CHANTIX [Suspect]
  2. TOPROL-XL [Suspect]
  3. EVISTA [Concomitant]
  4. LIPITOR [Concomitant]
  5. ZYRTEC [Concomitant]
  6. ARTHROTEC [Concomitant]
  7. VALSARTAN [Concomitant]
  8. ASPIRIN [Concomitant]
  9. VYTORIN [Concomitant]
     Dosage: TEXT:10/40

REACTIONS (3)
  - AMYOTROPHIC LATERAL SCLEROSIS [None]
  - FATIGUE [None]
  - NOCTURIA [None]
